FAERS Safety Report 23453117 (Version 2)
Quarter: 2024Q1

REPORT INFORMATION
  Report Type: Spontaneous
  Country: ES (occurrence: ES)
  Receive Date: 20240129
  Receipt Date: 20240201
  Transmission Date: 20240409
  Serious: Yes (Other)
  Sender: FDA-Public Use
  Company Number: ES-BoehringerIngelheim-2024-BI-004472

PATIENT
  Age: 77 Year
  Sex: Male
  Weight: 78 kg

DRUGS (3)
  1. SYNJARDY [Suspect]
     Active Substance: EMPAGLIFLOZIN\METFORMIN HYDROCHLORIDE
     Indication: Type 2 diabetes mellitus
     Dosage: 5MG/1000MG?ONE TABLET IN THE MORNING AND ANOTHER IN THE EVENING
     Dates: start: 20230912, end: 202401
  2. SYNJARDY [Suspect]
     Active Substance: EMPAGLIFLOZIN\METFORMIN HYDROCHLORIDE
     Dosage: 5MG/1000MG?REGIMEN REDUCED TO HALF A TABLET IN THE EVENING
     Dates: start: 202401, end: 20240129
  3. ASPIRIN [Concomitant]
     Active Substance: ASPIRIN
     Indication: Cardiac disorder

REACTIONS (4)
  - Weight decreased [Recovering/Resolving]
  - Decreased appetite [Recovering/Resolving]
  - Pollakiuria [Not Recovered/Not Resolved]
  - Decreased interest [Recovering/Resolving]

NARRATIVE: CASE EVENT DATE: 20230912
